FAERS Safety Report 5216617-0 (Version None)
Quarter: 2007Q1

REPORT INFORMATION
  Report Type: 
  Country: None (occurrence: None)
  Receive Date: 20061130
  Receipt Date: 20060417
  Transmission Date: 20070707
  Serious: Yes (Hospitalization)
  Sender: FDA-Public Use
  Company Number: US200604004376

PATIENT
  Age: 45 Year
  Sex: Male
  Weight: 135.1 kg

DRUGS (6)
  1. ZYPREXA [Suspect]
     Dates: start: 19970101, end: 20010101
  2. SEROQUEL [Concomitant]
  3. DEPAKOTE [Concomitant]
  4. WELLBUTRIN [Concomitant]
  5. EFFEXOR [Concomitant]
  6. DIURETICS [Concomitant]

REACTIONS (2)
  - DIABETES MELLITUS [None]
  - PANCREATITIS [None]
